FAERS Safety Report 12175869 (Version 11)
Quarter: 2018Q1

REPORT INFORMATION
  Report Type: Report from Study
  Country: CA (occurrence: CA)
  Receive Date: 20160314
  Receipt Date: 20180323
  Transmission Date: 20180508
  Serious: Yes (Disabling, Other)
  Sender: FDA-Public Use
  Company Number: CA-ROCHE-1328510

PATIENT
  Age: 58 Year
  Sex: Male
  Weight: 76 kg

DRUGS (18)
  1. IBUPROFEN. [Concomitant]
     Active Substance: IBUPROFEN
     Dosage: 2 TO 3 TAB PER DAY
     Route: 065
     Dates: start: 20160324
  2. ACTEMRA [Suspect]
     Active Substance: TOCILIZUMAB
     Route: 042
     Dates: start: 20140310
  3. FOLATE [Concomitant]
     Active Substance: FOLATE SODIUM
     Dosage: PER WEEK FOR 5 DAYS?NEXT DOSES: 29/SEP/2015, 24/MAR/2016
     Route: 065
  4. VITAMIN C [Concomitant]
     Active Substance: ASCORBIC ACID
     Dosage: NEXT DOSES: 29/SEP/2015, 24/MAR/2016 (DAILY)
     Route: 065
  5. DEPO-MEDROL [Concomitant]
     Active Substance: METHYLPREDNISOLONE ACETATE
  6. ACTEMRA [Suspect]
     Active Substance: TOCILIZUMAB
     Route: 042
     Dates: start: 20130916
  7. ACTEMRA [Suspect]
     Active Substance: TOCILIZUMAB
     Route: 042
     Dates: start: 20180212
  8. METHOTREXATE. [Concomitant]
     Active Substance: METHOTREXATE
     Dosage: NEXT DOSES: 29/SEP/2015 AND
     Route: 058
  9. ACTEMRA [Suspect]
     Active Substance: TOCILIZUMAB
     Indication: RHEUMATOID ARTHRITIS
     Dosage: NEXT DOSES ON 29/SEP/2015 AND 24/MAR/2016 PER MONTH
     Route: 042
     Dates: start: 20130322
  10. ACTEMRA [Suspect]
     Active Substance: TOCILIZUMAB
     Route: 042
     Dates: start: 20170406
  11. ACTEMRA [Suspect]
     Active Substance: TOCILIZUMAB
     Route: 042
     Dates: start: 20160527
  12. ACTEMRA [Suspect]
     Active Substance: TOCILIZUMAB
     Route: 042
     Dates: start: 20160711
  13. ACTEMRA [Suspect]
     Active Substance: TOCILIZUMAB
     Route: 042
     Dates: start: 20180313
  14. VITAMIN B12 [Concomitant]
     Active Substance: CYANOCOBALAMIN
     Dosage: NEXT DOSES: 29/SEP/2015, 24/MAR/2016
     Route: 030
  15. ADVIL [Concomitant]
     Active Substance: IBUPROFEN
  16. ACTEMRA [Suspect]
     Active Substance: TOCILIZUMAB
     Route: 042
     Dates: start: 20170608
  17. ACTEMRA [Suspect]
     Active Substance: TOCILIZUMAB
     Route: 042
  18. IBUPROFEN. [Concomitant]
     Active Substance: IBUPROFEN
     Dosage: 1 TAB PER DAY NEXT DOSE ON 29/09/2015
     Route: 065
     Dates: start: 20150319

REACTIONS (29)
  - Peripheral venous disease [Unknown]
  - Furuncle [Recovered/Resolved]
  - Hypotension [Unknown]
  - Infusion related reaction [Unknown]
  - Weight increased [Unknown]
  - Malaise [Unknown]
  - Chills [Not Recovered/Not Resolved]
  - Arthropathy [Unknown]
  - White blood cell count decreased [Not Recovered/Not Resolved]
  - Joint stiffness [Not Recovered/Not Resolved]
  - Gastric infection [Recovered/Resolved]
  - Blood pressure fluctuation [Unknown]
  - White blood cell count abnormal [Recovering/Resolving]
  - Swelling [Unknown]
  - Malaise [Not Recovered/Not Resolved]
  - Rhinorrhoea [Recovered/Resolved]
  - Arthropathy [Recovered/Resolved]
  - Weight decreased [Recovering/Resolving]
  - Blood pressure diastolic increased [Unknown]
  - Swelling [Not Recovered/Not Resolved]
  - Skin burning sensation [Not Recovered/Not Resolved]
  - Joint swelling [Not Recovered/Not Resolved]
  - Sneezing [Recovered/Resolved]
  - Blood pressure increased [Unknown]
  - Congenital musculoskeletal anomaly [Unknown]
  - Feeling cold [Unknown]
  - Hypotension [Unknown]
  - Blood pressure systolic decreased [Unknown]
  - Herpes zoster [Not Recovered/Not Resolved]

NARRATIVE: CASE EVENT DATE: 2015
